FAERS Safety Report 9465912 (Version 1)
Quarter: 2013Q3

REPORT INFORMATION
  Report Type: Spontaneous
  Country: US (occurrence: US)
  Receive Date: 20130820
  Receipt Date: 20130820
  Transmission Date: 20140515
  Serious: Yes (Other)
  Sender: FDA-Public Use
  Company Number: US-ELI_LILLY_AND_COMPANY-US201308003726

PATIENT
  Age: 54 Year
  Sex: Male

DRUGS (7)
  1. ALIMTA [Suspect]
     Indication: PERITONEAL MESOTHELIOMA MALIGNANT
     Dosage: 1215 MG, UNK
     Dates: start: 20130416, end: 20130618
  2. CARBOPLATIN [Suspect]
     Indication: PERITONEAL MESOTHELIOMA MALIGNANT
     Dosage: UNK
     Dates: start: 20130416
  3. CENTRUM SILVER                     /01292501/ [Concomitant]
  4. DULCOLAX                           /00064401/ [Concomitant]
  5. ZOFRAN [Concomitant]
     Dosage: UNK, PRN
  6. KYTRIL [Concomitant]
  7. DEXAMETHASONE [Concomitant]

REACTIONS (7)
  - Mobility decreased [Unknown]
  - Bone marrow failure [Unknown]
  - Blood creatinine increased [Unknown]
  - Fatigue [Unknown]
  - Asthenia [Unknown]
  - Nephrolithiasis [Unknown]
  - Off label use [Recovered/Resolved]
